FAERS Safety Report 6781650-4 (Version None)
Quarter: 2010Q2

REPORT INFORMATION
  Report Type: 
  Country: None (occurrence: None)
  Receive Date: 20100617
  Receipt Date: 20100617
  Transmission Date: 20101027
  Serious: Yes (Life-Threatening, Hospitalization)
  Sender: FDA-Public Use
  Company Number: None

PATIENT
  Sex: Female
  Weight: 58.9676 kg

DRUGS (12)
  1. MULTAQ [Suspect]
     Dosage: 400MG TWICE DAILY PO
     Route: 048
     Dates: start: 20100519, end: 20100523
  2. WARFARIN [Concomitant]
  3. FOSAMAX [Concomitant]
  4. VITAMIN D3 [Concomitant]
  5. OMEPRAZOLE [Concomitant]
  6. LISINOPRIL [Concomitant]
  7. PROPOXYPHENE [Concomitant]
  8. TRIAZOLAM [Concomitant]
  9. LEVOTHROID [Concomitant]
  10. VERAPAMIL [Concomitant]
  11. METOPROLOL TARTRATE [Concomitant]
  12. FUROSEMIDE [Concomitant]

REACTIONS (3)
  - DYSPNOEA [None]
  - FATIGUE [None]
  - INTERNATIONAL NORMALISED RATIO INCREASED [None]
